FAERS Safety Report 16324188 (Version 1)
Quarter: 2019Q2

REPORT INFORMATION
  Report Type: Spontaneous
  Country: GB (occurrence: GB)
  Receive Date: 20190517
  Receipt Date: 20190517
  Transmission Date: 20190711
  Serious: Yes (Hospitalization)
  Sender: FDA-Public Use
  Company Number: GB-TEVA-2019-GB-1049253

PATIENT
  Age: 67 Year
  Sex: Male

DRUGS (4)
  1. FOLIC ACID. [Concomitant]
     Active Substance: FOLIC ACID
  2. WARFARIN [Suspect]
     Active Substance: WARFARIN
     Dosage: DEPENDS ON INR.
  3. MEBEVERINE [Concomitant]
     Active Substance: MEBEVERINE
  4. TIMOLOL. [Concomitant]
     Active Substance: TIMOLOL
     Dosage: RIGHT EYE

REACTIONS (1)
  - Haematuria [Recovered/Resolved]
